FAERS Safety Report 7062172-2 (Version None)
Quarter: 2010Q4

REPORT INFORMATION
  Report Type: 
  Country: None (occurrence: None)
  Receive Date: 20101026
  Receipt Date: 20101021
  Transmission Date: 20110411
  Serious: No
  Sender: FDA-Public Use
  Company Number: US-BAXTER-2010BH021960

PATIENT

DRUGS (1)
  1. POTASSIUM CHLORIDE IN PLASTIC CONTAINER [Suspect]
     Indication: HYPOKALAEMIA
     Route: 042

REACTIONS (3)
  - LOCAL SWELLING [None]
  - RASH [None]
  - SWELLING [None]
